FAERS Safety Report 12198972 (Version 1)
Quarter: 2016Q1

REPORT INFORMATION
  Report Type: Spontaneous
  Country: GB (occurrence: GB)
  Receive Date: 20160322
  Receipt Date: 20160322
  Transmission Date: 20160526
  Serious: Yes (Hospitalization)
  Sender: FDA-Public Use
  Company Number: GB-AUROBINDO-AUR-APL-2016-03603

PATIENT
  Age: 84 Year
  Sex: Female

DRUGS (10)
  1. LEVOTHYROXINE. [Concomitant]
     Active Substance: LEVOTHYROXINE
     Indication: PRODUCT USED FOR UNKNOWN INDICATION
     Route: 065
  2. NITRAZEPAM [Concomitant]
     Active Substance: NITRAZEPAM
     Indication: PRODUCT USED FOR UNKNOWN INDICATION
     Route: 065
  3. RISPERIDONE 0.5MG [Suspect]
     Active Substance: RISPERIDONE
     Dosage: 500 ?G, UNK
     Route: 048
     Dates: start: 20160201, end: 20160210
  4. RISPERIDONE 0.5MG [Suspect]
     Active Substance: RISPERIDONE
     Indication: DEPRESSION
     Dosage: 500 ?G, TWO TIMES A DAY
     Route: 048
     Dates: end: 20160201
  5. OMEPRAZOLE. [Concomitant]
     Active Substance: OMEPRAZOLE
     Indication: PRODUCT USED FOR UNKNOWN INDICATION
     Route: 065
  6. MIRTAZAPINE. [Concomitant]
     Active Substance: MIRTAZAPINE
     Indication: PRODUCT USED FOR UNKNOWN INDICATION
     Route: 065
  7. FLUCLOXACILLIN [Concomitant]
     Active Substance: FLUCLOXACILLIN
     Indication: PRODUCT USED FOR UNKNOWN INDICATION
     Route: 065
  8. INDAPAMIDE. [Concomitant]
     Active Substance: INDAPAMIDE
     Indication: PRODUCT USED FOR UNKNOWN INDICATION
     Route: 065
  9. CO-DYDRAMOL [Concomitant]
     Active Substance: ACETAMINOPHEN\DIHYDROCODEINE
     Indication: PRODUCT USED FOR UNKNOWN INDICATION
     Route: 065
  10. PERINDOPRIL [Concomitant]
     Active Substance: PERINDOPRIL
     Indication: PRODUCT USED FOR UNKNOWN INDICATION
     Route: 065

REACTIONS (7)
  - Parkinsonism [Recovered/Resolved with Sequelae]
  - Dysphagia [Unknown]
  - Depressed mood [Unknown]
  - Neglect of personal appearance [Unknown]
  - Fall [Unknown]
  - Social avoidant behaviour [Unknown]
  - Treatment noncompliance [Unknown]
